FAERS Safety Report 24812152 (Version 2)
Quarter: 2025Q1

REPORT INFORMATION
  Report Type: Spontaneous
  Country: TR (occurrence: TR)
  Receive Date: 20250106
  Receipt Date: 20250117
  Transmission Date: 20250409
  Serious: Yes (Other)
  Sender: TEVA
  Company Number: TR-TEVA-VS-3282537

PATIENT
  Age: 43 Year
  Sex: Female

DRUGS (12)
  1. DOXORUBICIN [Suspect]
     Active Substance: DOXORUBICIN
     Indication: Hormone receptor positive HER2 negative breast cancer
     Route: 065
  2. PACLITAXEL [Suspect]
     Active Substance: PACLITAXEL
     Indication: Hormone receptor positive HER2 negative breast cancer
     Dosage: 12 CYCLES
     Route: 065
     Dates: start: 201802, end: 201807
  3. PACLITAXEL [Suspect]
     Active Substance: PACLITAXEL
     Indication: Hormone receptor positive HER2 negative breast cancer
     Route: 065
     Dates: start: 202201, end: 202207
  4. GEMCITABINE [Concomitant]
     Active Substance: GEMCITABINE
     Indication: Hormone receptor positive HER2 negative breast cancer
     Dosage: ON DAY 1 AND DAY 8
     Route: 065
     Dates: start: 202201, end: 202207
  5. TAMOXIFEN [Suspect]
     Active Substance: TAMOXIFEN
     Indication: Hormone receptor positive HER2 negative breast cancer
     Route: 065
     Dates: start: 201809, end: 202101
  6. PALBOCICLIB [Suspect]
     Active Substance: PALBOCICLIB
     Indication: Hormone receptor positive HER2 negative breast cancer
     Route: 065
     Dates: start: 202101, end: 202111
  7. CAPECITABINE [Suspect]
     Active Substance: CAPECITABINE
     Indication: Hormone receptor positive HER2 negative breast cancer
     Route: 065
  8. ZOLEDRONIC ACID [Concomitant]
     Active Substance: ZOLEDRONIC ACID
     Indication: Metastases to bone
     Route: 065
     Dates: start: 202101, end: 202111
  9. ALPELISIB [Suspect]
     Active Substance: ALPELISIB
     Indication: Hormone receptor positive HER2 negative breast cancer
     Route: 065
  10. ALPELISIB [Suspect]
     Active Substance: ALPELISIB
     Indication: Hormone receptor positive HER2 negative breast cancer
     Route: 065
     Dates: start: 202304, end: 202305
  11. FULVESTRANT [Suspect]
     Active Substance: FULVESTRANT
     Indication: Hormone receptor positive HER2 negative breast cancer
     Route: 065
  12. LEUPROLIDE ACETATE [Suspect]
     Active Substance: LEUPROLIDE ACETATE
     Indication: Hormone receptor positive HER2 negative breast cancer
     Route: 065
     Dates: start: 201809, end: 202101

REACTIONS (7)
  - Drug ineffective [Unknown]
  - Neuropathy peripheral [Unknown]
  - Palmar-plantar erythrodysaesthesia syndrome [Unknown]
  - Hyperglycaemia [Recovered/Resolved]
  - Diarrhoea [Unknown]
  - Asthenia [Unknown]
  - Nausea [Unknown]

NARRATIVE: CASE EVENT DATE: 20220101
